FAERS Safety Report 4586987-5 (Version None)
Quarter: 2005Q1

REPORT INFORMATION
  Report Type: 
  Country: None (occurrence: None)
  Receive Date: 20050218
  Receipt Date: 20050214
  Transmission Date: 20050727
  Serious: Yes (Other)
  Sender: FDA-Public Use
  Company Number: US-JNJFOC-20050203731

PATIENT
  Age: 52 Year
  Sex: Female

DRUGS (2)
  1. DURAGESIC [Suspect]
     Dosage: ONE 100 UG/HR PATCH PLUS ONE 50 UG/HR PATCH
     Route: 062
     Dates: end: 20050206
  2. KLONAPIN [Concomitant]
     Indication: ANXIETY DISORDER
     Dosage: ON THERAPY FOR YEARS
     Route: 049

REACTIONS (3)
  - DRUG WITHDRAWAL SYNDROME [None]
  - HEPATITIS C [None]
  - HEPATOCELLULAR DAMAGE [None]
